FAERS Safety Report 4921552-9 (Version None)
Quarter: 2006Q1

REPORT INFORMATION
  Report Type: 
  Country: None (occurrence: None)
  Receive Date: 20060221
  Receipt Date: 20060208
  Transmission Date: 20060701
  Serious: Yes (Other)
  Sender: FDA-Public Use
  Company Number: 2006020216

PATIENT
  Age: 6 Month
  Sex: Female
  Weight: 7.2576 kg

DRUGS (2)
  1. INFANT'S PEDIACARE DECONGESTANT AND COUGH DROPS (PSEUDOEPHEDRINE,  DEX [Suspect]
     Indication: NASAL CONGESTION
     Dosage: .2ML-.8ML ONE TIME, ORAL
     Route: 048
     Dates: start: 20060207, end: 20060207
  2. SALINE MIXTURE (AMMONIUM ACETATE, CAMPHOR WATER, SODIUM CITRATE, SODIU [Concomitant]

REACTIONS (2)
  - INCORRECT DOSE ADMINISTERED [None]
  - MUSCLE TWITCHING [None]
